FAERS Safety Report 5489873-1 (Version None)
Quarter: 2007Q4

REPORT INFORMATION
  Report Type: 
  Country: None (occurrence: None)
  Receive Date: 20071018
  Receipt Date: 20071012
  Transmission Date: 20080405
  Serious: Yes (Other)
  Sender: FDA-Public Use
  Company Number: CA-ASTRAZENECA-2007UW23985

PATIENT
  Sex: Female

DRUGS (10)
  1. SEROQUEL [Suspect]
     Route: 048
     Dates: start: 20040101
  2. CALCIUM + MAGNESIUM [Concomitant]
  3. CHROMIUM [Concomitant]
  4. FOLIC ACID [Concomitant]
  5. NIACIN [Concomitant]
  6. SALMON OIL [Concomitant]
  7. VITAMIN B COMPLEX CAP [Concomitant]
  8. VITAMIN B6 [Concomitant]
  9. ASCORBIC ACID [Concomitant]
  10. ZINC CITRATE [Concomitant]

REACTIONS (5)
  - BURNING SENSATION [None]
  - CONVULSION [None]
  - DYSKINESIA [None]
  - PHOTOSENSITIVITY REACTION [None]
  - RASH [None]
